FAERS Safety Report 11658880 (Version 5)
Quarter: 2015Q4

REPORT INFORMATION
  Report Type: Spontaneous
  Country: US (occurrence: US)
  Receive Date: 20151026
  Receipt Date: 20151104
  Transmission Date: 20160304
  Serious: No
  Sender: FDA-Public Use
  Company Number: PHEH2015US018371

PATIENT
  Age: 58 Year
  Sex: Female

DRUGS (1)
  1. ESTRADIOL. [Suspect]
     Active Substance: ESTRADIOL
     Indication: MENOPAUSE
     Dosage: 1 DF, BIW (1PATCH)
     Route: 062
     Dates: start: 20150902

REACTIONS (3)
  - Drug ineffective [Unknown]
  - Menopause [Not Recovered/Not Resolved]
  - Hot flush [Unknown]
